FAERS Safety Report 7683973-3 (Version None)
Quarter: 2011Q3

REPORT INFORMATION
  Report Type: 
  Country: None (occurrence: None)
  Receive Date: 20110815
  Receipt Date: 20110801
  Transmission Date: 20111222
  Serious: Yes (Other)
  Sender: FDA-Public Use
  Company Number: PHHY2011US66111

PATIENT
  Sex: Female
  Weight: 67.574 kg

DRUGS (5)
  1. METFORMIN HCL [Concomitant]
  2. SYNTHROID [Concomitant]
  3. DIOVAN HCT [Suspect]
     Indication: BLOOD PRESSURE
     Dosage: 320.12.5 MG (HALF DAILY)
     Route: 048
     Dates: start: 20110128, end: 20110721
  4. SIMVASTATIN [Concomitant]
     Dosage: 40 MG, UNK
  5. PROTONICS [Concomitant]

REACTIONS (2)
  - OEDEMA MOUTH [None]
  - OROPHARYNGEAL BLISTERING [None]
